FAERS Safety Report 4289558-3 (Version None)
Quarter: 2004Q1

REPORT INFORMATION
  Report Type: 
  Country: None (occurrence: None)
  Receive Date: 20040126
  Receipt Date: 20031017
  Transmission Date: 20041129
  Serious: No
  Sender: FDA-Public Use
  Company Number: USA030948444

PATIENT
  Age: 56 Year
  Sex: Female
  Weight: 64 kg

DRUGS (9)
  1. FORTEO [Suspect]
     Indication: OSTEOPOROSIS
     Dosage: 20 UG/DAY
     Dates: start: 20030602, end: 20031003
  2. VIACTIV [Concomitant]
  3. SYNTHROID [Concomitant]
  4. VITAMIN D [Concomitant]
  5. WELLBUTRIN [Concomitant]
  6. PREVACID [Concomitant]
  7. LUPRON [Concomitant]
  8. DARVON (DEXTROPROPOXPHENE HYDROCHLORIDE) [Concomitant]
  9. ZOMETA [Concomitant]

REACTIONS (2)
  - INJECTION SITE DISCOLOURATION [None]
  - PIGMENTATION DISORDER [None]
